FAERS Safety Report 23256413 (Version 3)
Quarter: 2024Q1

REPORT INFORMATION
  Report Type: Spontaneous
  Country: US (occurrence: US)
  Receive Date: 20231204
  Receipt Date: 20240325
  Transmission Date: 20240410
  Serious: No
  Sender: FDA-Public Use
  Company Number: US-AMGEN-USASP2023215984

PATIENT
  Age: 62 Year
  Sex: Male
  Weight: 83.01 kg

DRUGS (2)
  1. REPATHA [Suspect]
     Active Substance: EVOLOCUMAB
     Indication: Hypercholesterolaemia
     Dosage: 420 MILLIGRAM/3.5 ML, QMO
     Route: 058
  2. REPATHA [Suspect]
     Active Substance: EVOLOCUMAB
     Indication: Type V hyperlipidaemia

REACTIONS (3)
  - Product preparation error [Unknown]
  - Drug dose omission by device [Unknown]
  - Lack of administration site rotation [Unknown]

NARRATIVE: CASE EVENT DATE: 20231101
